FAERS Safety Report 25031490 (Version 2)
Quarter: 2025Q2

REPORT INFORMATION
  Report Type: Spontaneous
  Country: JP (occurrence: JP)
  Receive Date: 20250303
  Receipt Date: 20250407
  Transmission Date: 20250717
  Serious: Yes (Hospitalization, Other)
  Sender: ALEXION PHARMACEUTICALS
  Company Number: JP-ASTRAZENECA-250018264_011620_P_1

PATIENT
  Age: 69 Year
  Weight: 43 kg

DRUGS (10)
  1. LYNPARZA [Suspect]
     Active Substance: OLAPARIB
     Indication: Ovarian cancer recurrent
     Dosage: 600 MILLIGRAM, QD, NUMBER OF SEPARATE DOSAGES UNKNOWN
  2. LYNPARZA [Suspect]
     Active Substance: OLAPARIB
     Dosage: 500 MILLIGRAM, QD, NUMBER OF SEPARATE DOSAGES UNKNOWN
  3. LYNPARZA [Suspect]
     Active Substance: OLAPARIB
     Dosage: 400 MILLIGRAM, QD, NUMBER OF SEPARATE DOSAGES UNKNOWN
  4. LYNPARZA [Suspect]
     Active Substance: OLAPARIB
     Dosage: 300 MILLIGRAM, BID
  5. LYNPARZA [Suspect]
     Active Substance: OLAPARIB
     Dosage: 250 MILLIGRAM, BID
  6. LYNPARZA [Suspect]
     Active Substance: OLAPARIB
     Dosage: 200 MILLIGRAM, BID
  7. SODIUM PICOSULFATE [Concomitant]
     Active Substance: SODIUM PICOSULFATE
  8. SODIUM PICOSULFATE [Concomitant]
     Active Substance: SODIUM PICOSULFATE
  9. ELOBIXIBAT [Concomitant]
     Active Substance: ELOBIXIBAT
     Route: 065
  10. ELOBIXIBAT [Concomitant]
     Active Substance: ELOBIXIBAT
     Route: 065

REACTIONS (5)
  - Diffuse large B-cell lymphoma [Not Recovered/Not Resolved]
  - Anaemia [Recovering/Resolving]
  - Leukaemia [Unknown]
  - Anaemia [Unknown]
  - Blood lactate dehydrogenase increased [Unknown]
